FAERS Safety Report 17719141 (Version 5)
Quarter: 2022Q3

REPORT INFORMATION
  Report Type: Report from Study
  Country: US (occurrence: US)
  Receive Date: 20200428
  Receipt Date: 20220823
  Transmission Date: 20221027
  Serious: No
  Sender: FDA-Public Use
  Company Number: NVSC2020US113023

PATIENT
  Age: 21 Year
  Sex: Female
  Weight: 168 kg

DRUGS (4)
  1. ILARIS [Suspect]
     Active Substance: CANAKINUMAB
     Indication: Hereditary neuropathic amyloidosis
     Dosage: 150 MG, Q4W
     Route: 058
     Dates: start: 20200226
  2. ILARIS [Suspect]
     Active Substance: CANAKINUMAB
     Indication: Familial amyloidosis
     Dosage: 140 MG (Q4 WEEKS)
     Route: 058
     Dates: start: 20200326
  3. ILARIS [Suspect]
     Active Substance: CANAKINUMAB
     Dosage: UNK
     Route: 065
     Dates: start: 20200411
  4. ILARIS [Suspect]
     Active Substance: CANAKINUMAB
     Dosage: 150 MG Q 8 WEEKS
     Route: 058
     Dates: start: 20200226

REACTIONS (11)
  - Rhinorrhoea [Recovering/Resolving]
  - Headache [Recovering/Resolving]
  - Throat irritation [Recovering/Resolving]
  - Paraesthesia [Recovering/Resolving]
  - Nausea [Recovering/Resolving]
  - White blood cell count increased [Unknown]
  - Chest discomfort [Unknown]
  - Pain [Unknown]
  - Dyspnoea [Unknown]
  - Anxiety [Unknown]
  - Dizziness [Recovering/Resolving]

NARRATIVE: CASE EVENT DATE: 20201207
